FAERS Safety Report 7623058-5 (Version None)
Quarter: 2011Q3

REPORT INFORMATION
  Report Type: 
  Country: None (occurrence: None)
  Receive Date: 20110720
  Receipt Date: 20110718
  Transmission Date: 20111222
  Serious: Yes (Other)
  Sender: FDA-Public Use
  Company Number: US-PFIZER INC-2011162728

PATIENT
  Sex: Female

DRUGS (2)
  1. LORAZEPAM [Concomitant]
     Dosage: UNK, 6X/DAY
  2. SERTRALINE HYDROCHLORIDE [Suspect]
     Dosage: 50 MG, 2X/DAY

REACTIONS (1)
  - OBSESSIVE-COMPULSIVE DISORDER [None]
